FAERS Safety Report 8574731-6 (Version None)
Quarter: 2012Q3

REPORT INFORMATION
  Report Type: 
  Country: None (occurrence: None)
  Receive Date: 20120807
  Receipt Date: 20120727
  Transmission Date: 20120928
  Serious: Yes (Other)
  Sender: FDA-Public Use
  Company Number: US-BIOGENIDEC-2012BI025480

PATIENT
  Sex: Female

DRUGS (1)
  1. TYSABRI [Suspect]
     Indication: MULTIPLE SCLEROSIS
     Route: 042
     Dates: start: 20101022, end: 20110811

REACTIONS (6)
  - DEPRESSION [None]
  - SUICIDAL IDEATION [None]
  - APPETITE DISORDER [None]
  - WEIGHT DECREASED [None]
  - FEELING ABNORMAL [None]
  - FEAR [None]
